FAERS Safety Report 6892208-0 (Version None)
Quarter: 2010Q3

REPORT INFORMATION
  Report Type: 
  Country: None (occurrence: None)
  Receive Date: 20100731
  Receipt Date: 20080229
  Transmission Date: 20110219
  Serious: No
  Sender: FDA-Public Use
  Company Number: US-PFIZER INC-2008004879

PATIENT
  Sex: Male
  Weight: 79.38 kg

DRUGS (12)
  1. GABAPENTIN [Suspect]
     Indication: NEURALGIA
     Route: 048
  2. GABAPENTIN [Suspect]
     Indication: MUSCULOSKELETAL PAIN
  3. ACETYLSALICYLIC ACID SRT [Suspect]
  4. IBUPROFEN TABLETS [Concomitant]
     Indication: PAIN
  5. TAMSULOSIN HYDROCHLORIDE [Concomitant]
  6. AVODART [Concomitant]
     Indication: PROSTATIC DISORDER
  7. THYROID TAB [Concomitant]
  8. LOPERAMIDE [Concomitant]
  9. CLARINEX [Concomitant]
     Indication: SINUS DISORDER
  10. VITAMINS [Concomitant]
  11. FISH OIL [Concomitant]
  12. IRON [Concomitant]

REACTIONS (2)
  - GOUT [None]
  - OEDEMA PERIPHERAL [None]
